FAERS Safety Report 10421777 (Version 3)
Quarter: 2014Q4

REPORT INFORMATION
  Report Type: Spontaneous
  Country: IT (occurrence: IT)
  Receive Date: 20140901
  Receipt Date: 20141007
  Transmission Date: 20150528
  Serious: Yes (Other)
  Sender: FDA-Public Use
  Company Number: IT-ACCORD-025343

PATIENT
  Age: 65 Year
  Sex: Female

DRUGS (4)
  1. FLUOROURACIL TEVA [Interacting]
     Active Substance: FLUOROURACIL
     Indication: PANCREATIC CARCINOMA
     Dosage: ALSO TOOK 4238 (BATCH NO. N24258) MG TOTAL ON 02-JUL-2014.
     Route: 042
     Dates: start: 20140611, end: 20140611
  2. IRINOTECAN ACTAVIS [Interacting]
     Active Substance: IRINOTECAN
     Indication: PANCREATIC CARCINOMA
     Dosage: 20 MG/ML; EXPIRATION DATE 31-OCT-2015
     Route: 042
     Dates: start: 20140611, end: 20140611
  3. IRINOTECAN ACCORD [Suspect]
     Active Substance: IRINOTECAN
     Indication: PANCREATIC CARCINOMA
     Dosage: BATCH NO. IS RELATED TO IRINOTECAN ACCORD BUT IT WAS SOLD BY FRESENIUS KABI.
     Route: 042
     Dates: start: 20140702, end: 20140702
  4. OXALIPLATIN ACCORD [Interacting]
     Active Substance: OXALIPLATIN
     Indication: PANCREATIC CARCINOMA
     Dosage: ALSO TOOK 128.6 MG (BATCH NO. R01568) TOTAL ON 02-JUL-2014.
     Route: 042
     Dates: start: 20140611, end: 20140611

REACTIONS (3)
  - Pancytopenia [Recovering/Resolving]
  - Drug interaction [Unknown]
  - Off label use [Unknown]

NARRATIVE: CASE EVENT DATE: 20140620
